FAERS Safety Report 15701542 (Version 1)
Quarter: 2018Q4

REPORT INFORMATION
  Report Type: Report from Study
  Country: US (occurrence: US)
  Receive Date: 20181208
  Receipt Date: 20181208
  Transmission Date: 20190205
  Serious: Yes (Other)
  Sender: FDA-Public Use
  Company Number: US-ROCHE-2104562

PATIENT
  Age: 50 Year
  Sex: Female
  Weight: 73.5 kg

DRUGS (1)
  1. ATEZOLIZUMAB. [Suspect]
     Active Substance: ATEZOLIZUMAB
     Indication: TRIPLE NEGATIVE BREAST CANCER
     Route: 042
     Dates: start: 20170717

REACTIONS (5)
  - Rash maculo-papular [Unknown]
  - Alanine aminotransferase increased [Unknown]
  - Hypotension [Unknown]
  - Aspartate aminotransferase increased [Unknown]
  - Sinus tachycardia [Unknown]

NARRATIVE: CASE EVENT DATE: 20170902
